FAERS Safety Report 12572946 (Version 1)
Quarter: 2016Q3

REPORT INFORMATION
  Report Type: Spontaneous
  Country: HU (occurrence: HU)
  Receive Date: 20160720
  Receipt Date: 20160720
  Transmission Date: 20161109
  Serious: Yes (Life-Threatening, Hospitalization, Other)
  Sender: FDA-Public Use
  Company Number: HU-ALVOGEN-2016-ALVOGEN-025932

PATIENT
  Age: 33 Year
  Sex: Female

DRUGS (1)
  1. DISULFIRAM. [Suspect]
     Active Substance: DISULFIRAM
     Indication: SUICIDE ATTEMPT

REACTIONS (3)
  - Suicide attempt [Unknown]
  - Catatonia [Unknown]
  - Toxicity to various agents [Unknown]
